FAERS Safety Report 6409047-7 (Version None)
Quarter: 2009Q4

REPORT INFORMATION
  Report Type: 
  Country: None (occurrence: None)
  Receive Date: 20091021
  Receipt Date: 20091009
  Transmission Date: 20100525
  Serious: Yes (Hospitalization)
  Sender: FDA-Public Use
  Company Number: US-JNJFOC-20090205292

PATIENT
  Sex: Male
  Weight: 93.5 kg

DRUGS (21)
  1. GOLIMUMAB [Suspect]
     Route: 058
  2. GOLIMUMAB [Suspect]
     Route: 058
  3. GOLIMUMAB [Suspect]
     Indication: RHEUMATOID ARTHRITIS
     Route: 058
  4. GOLIMUMAB [Suspect]
     Route: 042
  5. GOLIMUMAB [Suspect]
     Route: 042
  6. GOLIMUMAB [Suspect]
     Route: 042
  7. GOLIMUMAB [Suspect]
     Route: 042
  8. GOLIMUMAB [Suspect]
     Route: 042
  9. GOLIMUMAB [Suspect]
     Route: 042
  10. GOLIMUMAB [Suspect]
     Route: 042
  11. METHOTREXATE [Suspect]
     Indication: RHEUMATOID ARTHRITIS
     Route: 048
  12. ACCUPRIL [Concomitant]
     Route: 048
  13. ADVAIR DISKUS 100/50 [Concomitant]
     Route: 048
  14. DOXYCYCLINE [Concomitant]
     Indication: RHEUMATOID ARTHRITIS
     Route: 048
  15. FOLIC ACID [Concomitant]
     Route: 048
  16. FUROSEMIDE [Concomitant]
     Route: 048
  17. KLOR-CON [Concomitant]
     Route: 048
  18. METHOTREXATE [Concomitant]
     Route: 048
  19. PREDNISONE [Concomitant]
     Indication: RHEUMATOID ARTHRITIS
     Route: 048
  20. SINGULAIR [Concomitant]
     Route: 048
  21. ACETAMINOPHEN [Concomitant]
     Route: 048

REACTIONS (1)
  - AORTIC ANEURYSM [None]
